FAERS Safety Report 7858462-3 (Version None)
Quarter: 2011Q4

REPORT INFORMATION
  Report Type: 
  Country: None (occurrence: None)
  Receive Date: 20111027
  Receipt Date: 20111017
  Transmission Date: 20120403
  Serious: Yes (Hospitalization)
  Sender: FDA-Public Use
  Company Number: JP-JNJFOC-20110906592

PATIENT
  Age: 72 Year
  Sex: Female

DRUGS (7)
  1. ISONIAZID [Concomitant]
     Indication: TUBERCULOSIS
     Route: 065
  2. REMICADE [Suspect]
     Indication: PSORIASIS
     Route: 042
     Dates: start: 20110801
  3. REMICADE [Suspect]
     Route: 042
     Dates: start: 20110801
  4. REMICADE [Suspect]
     Route: 042
     Dates: start: 20110204
  5. REMICADE [Suspect]
     Indication: PSORIATIC ARTHROPATHY
     Route: 042
     Dates: start: 20110204
  6. REMICADE [Suspect]
     Route: 042
     Dates: start: 20101116
  7. REMICADE [Suspect]
     Route: 042
     Dates: start: 20101116

REACTIONS (3)
  - ASCITES [None]
  - TUBERCULOSIS [None]
  - PERITONEAL TUBERCULOSIS [None]
